FAERS Safety Report 7423244-3 (Version None)
Quarter: 2011Q2

REPORT INFORMATION
  Report Type: 
  Country: None (occurrence: None)
  Receive Date: 20110413
  Receipt Date: 20110413
  Transmission Date: 20111010
  Serious: Yes (Hospitalization)
  Sender: FDA-Public Use
  Company Number: None

PATIENT
  Sex: Female
  Weight: 62.2 kg

DRUGS (2)
  1. PACLITAXEL [Suspect]
     Dosage: 320 MG
     Dates: end: 20110324
  2. CISPLATIN [Suspect]
     Dosage: 120 MG
     Dates: end: 20110317

REACTIONS (5)
  - PLEURAL EFFUSION [None]
  - ABDOMINAL PAIN [None]
  - ASCITES [None]
  - NAUSEA [None]
  - VOMITING [None]
